FAERS Safety Report 14479970 (Version 1)
Quarter: 2018Q1

REPORT INFORMATION
  Report Type: Report from Study
  Country: None (occurrence: AR)
  Receive Date: 20180202
  Receipt Date: 20180202
  Transmission Date: 20180509
  Serious: Yes (Other)
  Sender: FDA-Public Use
  Company Number: AR-ABBVIE-18K-007-2222041-00

PATIENT
  Age: 62 Year
  Sex: Male

DRUGS (10)
  1. ONBRIZE [Concomitant]
     Active Substance: INDACATEROL MALEATE
     Indication: LUNG DISORDER
  2. HUMIRA [Suspect]
     Active Substance: ADALIMUMAB
     Indication: COLITIS ULCERATIVE
     Route: 058
     Dates: start: 20171103
  3. LORCET [Concomitant]
     Active Substance: ACETAMINOPHEN\HYDROCODONE BITARTRATE
     Indication: CARDIAC DISORDER
  4. SALBUTRAL [Concomitant]
     Indication: LUNG DISORDER
  5. AEROTROP [Concomitant]
     Indication: LUNG DISORDER
  6. PROCORALAN [Concomitant]
     Active Substance: IVABRADINE
     Indication: CARDIAC DISORDER
  7. MICARDIS 40 [Concomitant]
     Indication: CARDIAC DISORDER
  8. SALBUTRAL [Concomitant]
     Indication: PRODUCT USED FOR UNKNOWN INDICATION
  9. VASTAREL LP [Concomitant]
     Indication: CARDIAC DISORDER
  10. NEBILET [Concomitant]
     Active Substance: NEBIVOLOL
     Indication: CARDIAC DISORDER

REACTIONS (2)
  - Pyrexia [Not Recovered/Not Resolved]
  - Benign gastrointestinal neoplasm [Unknown]

NARRATIVE: CASE EVENT DATE: 20180101
